FAERS Safety Report 8850252 (Version 1)
Quarter: 2012Q4

REPORT INFORMATION
  Report Type: 
  Country: US (occurrence: US)
  Receive Date: 20121019
  Receipt Date: 20121019
  Transmission Date: 20130627
  Serious: Yes (Life-Threatening, Hospitalization)
  Sender: FDA-Public Use
  Company Number: CHPA2012US021934

PATIENT
  Age: 51 Year
  Sex: Male

DRUGS (4)
  1. EXCEDRIN EXTRA STRENGTH [Suspect]
     Indication: HEADACHE
     Dosage: 2 DF, PRN
     Route: 048
  2. NOVOLIN 70/30 [Concomitant]
     Indication: DIABETES MELLITUS
     Dosage: 70 UNITS IN AM, 60 UNITS IN PM
  3. TOPROL XL [Concomitant]
     Indication: HYPERTENSION
     Dosage: Unk, Unk
  4. LISINOPRIL W/HYDROCHLOROTHIAZIDE [Concomitant]
     Indication: HYPERTENSION
     Dosage: Unk, Unk

REACTIONS (5)
  - Diabetes mellitus [Recovered/Resolved]
  - Neoplasm [Recovered/Resolved]
  - Blood glucose decreased [Not Recovered/Not Resolved]
  - Chills [Not Recovered/Not Resolved]
  - Tremor [Not Recovered/Not Resolved]
